FAERS Safety Report 7820474 (Version 4)
Quarter: 2013Q4

REPORT INFORMATION
  Report Type: Spontaneous
  Country: US (occurrence: US)
  Receive Date: 20110221
  Receipt Date: 20131206
  Transmission Date: 20140711
  Serious: Yes (Hospitalization)
  Sender: FDA-Public Use
  Company Number: US-BAYER-2011-015283

PATIENT
  Age: 35 Year
  Sex: Female
  Weight: 86.17 kg

DRUGS (17)
  1. YAZ [Suspect]
     Indication: CONTRACEPTION
     Dosage: UNK
     Route: 048
     Dates: start: 200701, end: 200802
  2. YAZ [Suspect]
     Indication: PREMENSTRUAL SYNDROME
  3. ZITHROMAX [Concomitant]
  4. DYNABAC [Concomitant]
  5. DIFLUCAN [Concomitant]
  6. AMOXICILLIN [Concomitant]
  7. CILOXAN [Concomitant]
  8. CIPROFLOXACIN [Concomitant]
  9. NABUMETONE [Concomitant]
  10. BACTRIM [Concomitant]
     Dosage: UNK
     Dates: start: 20070320
  11. PHENAZOPYRIDINE [Concomitant]
  12. PROCHLORPERAZINE [Concomitant]
  13. VITAMIN C [Concomitant]
  14. LAMICTAL [Concomitant]
  15. CLONAZEPAM [Concomitant]
  16. TRILEPTAL [Concomitant]
  17. SEROQUEL [Concomitant]

REACTIONS (6)
  - Gallbladder injury [None]
  - Pulmonary embolism [Recovering/Resolving]
  - Cholecystitis acute [None]
  - Pain [None]
  - Emotional distress [None]
  - Anxiety [None]
